FAERS Safety Report 5151836-3 (Version None)
Quarter: 2006Q4

REPORT INFORMATION
  Report Type: 
  Country: None (occurrence: None)
  Receive Date: 20061107
  Receipt Date: 20061023
  Transmission Date: 20070319
  Serious: Yes (Death)
  Sender: FDA-Public Use
  Company Number: B0443372A

PATIENT
  Age: 58 Year
  Sex: 0

DRUGS (4)
  1. COREG [Suspect]
     Dosage: ORAL
     Route: 048
  2. WARFARIN SODIUM [Suspect]
     Dosage: ORAL
     Route: 048
  3. COLCHICINE (COLCHICINE) [Suspect]
     Dosage: ORAL
     Route: 048
  4. UNKNOWN (UNKNOWN) [Suspect]
     Dosage: ORAL
     Route: 048

REACTIONS (1)
  - COMPLETED SUICIDE [None]
